FAERS Safety Report 7523160-2 (Version None)
Quarter: 2011Q2

REPORT INFORMATION
  Report Type: 
  Country: None (occurrence: None)
  Receive Date: 20110603
  Receipt Date: 20110524
  Transmission Date: 20111010
  Serious: Yes (Hospitalization)
  Sender: FDA-Public Use
  Company Number: US-CELGENEUS-163-21880-09082012

PATIENT
  Sex: Female
  Weight: 159.1 kg

DRUGS (16)
  1. DEXAMETHASONE [Suspect]
     Indication: MULTIPLE MYELOMA
     Dosage: 10 MILLIGRAM
     Route: 048
     Dates: start: 20090717
  2. LOVENOX [Concomitant]
     Dosage: 40 IU (INTERNATIONAL UNIT)
     Route: 058
     Dates: start: 20090727
  3. PHOSPHOLINE [Concomitant]
     Route: 065
  4. EMPIRIC CEFEPIME [Concomitant]
     Dates: start: 20090825
  5. DOXIL [Suspect]
     Dosage: 30 MILLIGRAM/SQ. METER
     Route: 051
     Dates: start: 20090727
  6. ACYCLOVIR [Concomitant]
     Indication: PROPHYLAXIS
     Dosage: 400 MILLIGRAM
     Route: 048
     Dates: start: 20090727
  7. BACTRIM DS [Concomitant]
     Dosage: 1
     Route: 048
  8. LOVENOX [Concomitant]
     Indication: PULMONARY EMBOLISM
  9. VELCADE [Suspect]
     Indication: MULTIPLE MYELOMA
     Dosage: 2.5 MILLIGRAM
     Route: 051
     Dates: start: 20090717, end: 20090701
  10. PRILOSEC [Concomitant]
     Indication: CONSTIPATION
     Route: 048
     Dates: start: 20081111
  11. ALLOPURINOL [Concomitant]
     Dosage: 300 MILLIGRAM
     Route: 048
     Dates: start: 20090727
  12. REVLIMID [Suspect]
     Indication: MULTIPLE MYELOMA
     Dosage: 25 MILLIGRAM
     Route: 048
     Dates: start: 20090717
  13. VELCADE [Suspect]
     Dosage: 1.3 MILLIGRAM/SQ. METER
     Route: 051
     Dates: start: 20090727
  14. DOXIL [Suspect]
     Indication: MULTIPLE MYELOMA
     Dosage: 30 MILLIGRAM/SQ. METER
     Route: 051
     Dates: start: 20090717, end: 20090701
  15. HYDROCHLOROTHIAZIDE [Concomitant]
     Dosage: 50/5 MG
     Route: 048
     Dates: start: 20090727
  16. FLUIDS [Concomitant]
     Route: 051

REACTIONS (3)
  - DYSPNOEA [None]
  - MENTAL STATUS CHANGES [None]
  - CONSTIPATION [None]
